FAERS Safety Report 13744879 (Version 1)
Quarter: 2017Q3

REPORT INFORMATION
  Report Type: Spontaneous
  Country: US (occurrence: US)
  Receive Date: 20170712
  Receipt Date: 20170712
  Transmission Date: 20171127
  Serious: No
  Sender: FDA-Public Use
  Company Number: US-PFIZER INC-2017302809

PATIENT
  Age: 61 Year
  Sex: Male
  Weight: 108.8 kg

DRUGS (2)
  1. NEURONTIN [Suspect]
     Active Substance: GABAPENTIN
     Indication: RESTLESS LEGS SYNDROME
  2. NEURONTIN [Suspect]
     Active Substance: GABAPENTIN
     Indication: DIABETIC NEUROPATHY
     Dosage: 300 MG, 1X/DAY (BED TIME )
     Route: 048
     Dates: start: 20170701

REACTIONS (2)
  - Drug ineffective for unapproved indication [Unknown]
  - Feeling abnormal [Unknown]
